FAERS Safety Report 5329412-9 (Version None)
Quarter: 2007Q2

REPORT INFORMATION
  Report Type: 
  Country: None (occurrence: None)
  Receive Date: 20070223
  Receipt Date: 20060929
  Transmission Date: 20071010
  Serious: Yes (Hospitalization)
  Sender: FDA-Public Use
  Company Number: WAES 0610USA00303

PATIENT
  Age: 74 Year
  Sex: Female

DRUGS (3)
  1. ZOCOR [Suspect]
     Indication: BLOOD CHOLESTEROL
     Dosage: 40 MG/DAILY/PO
     Route: 048
  2. ACTONEL [Concomitant]
  3. TOPROL-XL [Concomitant]

REACTIONS (1)
  - DYSPEPSIA [None]
